FAERS Safety Report 4289458-9 (Version None)
Quarter: 2004Q1

REPORT INFORMATION
  Report Type: 
  Country: None (occurrence: None)
  Receive Date: 20040203
  Receipt Date: 20030807
  Transmission Date: 20041129
  Serious: Yes (Other)
  Sender: FDA-Public Use
  Company Number: 200322091BWH

PATIENT
  Age: 27 Year
  Sex: Female
  Weight: 68.0396 kg

DRUGS (3)
  1. AVELOX [Suspect]
     Indication: EAR INFECTION
     Dosage: 400 MG, QD, ORAL
     Route: 048
     Dates: start: 20030711, end: 20030713
  2. AVELOX [Suspect]
     Indication: SINUSITIS
     Dosage: 400 MG, QD, ORAL
     Route: 048
     Dates: start: 20030711, end: 20030713
  3. CELEXA [Concomitant]

REACTIONS (5)
  - JAUNDICE [None]
  - JOINT SWELLING [None]
  - MUSCLE TIGHTNESS [None]
  - RASH PRURITIC [None]
  - TENDON DISORDER [None]
